FAERS Safety Report 25538674 (Version 2)
Quarter: 2025Q3

REPORT INFORMATION
  Report Type: Spontaneous
  Country: US (occurrence: US)
  Receive Date: 20250710
  Receipt Date: 20250714
  Transmission Date: 20251020
  Serious: No
  Sender: SANOFI AVENTIS
  Company Number: US-SA-2025SA192346

PATIENT
  Age: 74 Year
  Sex: Female

DRUGS (2)
  1. DUPIXENT [Suspect]
     Active Substance: DUPILUMAB
     Indication: Psoriasis
     Dosage: 300 MG, QOW
     Route: 058
     Dates: start: 202410
  2. DUPIXENT [Suspect]
     Active Substance: DUPILUMAB
     Indication: Psoriatic arthropathy

REACTIONS (6)
  - Pain [Unknown]
  - Erythema [Unknown]
  - Pruritus [Unknown]
  - Skin burning sensation [Unknown]
  - Product use in unapproved indication [Unknown]
  - Psoriasis [Unknown]

NARRATIVE: CASE EVENT DATE: 20241001
